FAERS Safety Report 6306008-3 (Version None)
Quarter: 2009Q3

REPORT INFORMATION
  Report Type: 
  Country: None (occurrence: None)
  Receive Date: 20090812
  Receipt Date: 20090804
  Transmission Date: 20100115
  Serious: Yes (Death, Hospitalization)
  Sender: FDA-Public Use
  Company Number: JP-PFIZER INC-2009248216

PATIENT
  Age: 71 Year

DRUGS (19)
  1. SILDENAFIL CITRATE [Suspect]
     Indication: PULMONARY HYPERTENSION
     Dosage: 10 MG, 1X/DAY
     Dates: start: 20090313
  2. SILDENAFIL CITRATE [Suspect]
     Dosage: 20 MG, 2X/DAY
     Dates: start: 20090316
  3. SILDENAFIL CITRATE [Suspect]
     Dosage: 30 MG, 3X/DAY
     Dates: start: 20090318
  4. SILDENAFIL CITRATE [Suspect]
     Dosage: 40 MG, 2X/DAY
     Dates: start: 20090320
  5. SILDENAFIL CITRATE [Suspect]
     Dosage: 20 MG, 2X/DAY
     Dates: start: 20090406, end: 20090705
  6. PREDNISOLONE [Concomitant]
     Route: 048
     Dates: start: 20090312
  7. LAFUTIDINE [Concomitant]
     Route: 048
     Dates: start: 20090312, end: 20090331
  8. SERMION [Concomitant]
     Route: 048
  9. KLARICID [Concomitant]
     Route: 048
  10. LASIX [Concomitant]
     Route: 048
     Dates: start: 20090312
  11. LOSARTAN POTASSIUM AND HYDROCHLOROTHIAZIDE [Concomitant]
     Route: 048
     Dates: start: 20090312, end: 20090331
  12. CYANOCOBALAMIN [Concomitant]
     Route: 048
     Dates: start: 20090312
  13. MUCOSTA [Concomitant]
     Route: 048
     Dates: start: 20090312
  14. WARFARIN POTASSIUM [Concomitant]
     Dates: start: 20090312
  15. CLEANAL [Concomitant]
     Route: 048
     Dates: start: 20090609
  16. ALENDRONATE SODIUM [Concomitant]
     Route: 048
     Dates: start: 20090528
  17. LENDORMIN [Concomitant]
     Route: 048
     Dates: start: 20090408
  18. MICONAZOLE NITRATE [Concomitant]
     Route: 048
     Dates: start: 20090403, end: 20090419
  19. PASIL [Concomitant]
     Route: 042
     Dates: start: 20090511, end: 20090518

REACTIONS (2)
  - RIB FRACTURE [None]
  - SEPSIS [None]
